FAERS Safety Report 6336524-X (Version None)
Quarter: 2009Q3

REPORT INFORMATION
  Report Type: 
  Country: None (occurrence: None)
  Receive Date: 20090901
  Receipt Date: 20090824
  Transmission Date: 20100115
  Serious: Yes (Other)
  Sender: FDA-Public Use
  Company Number: CN-ROCHE-652243

PATIENT
  Age: 36 Year
  Sex: Male

DRUGS (1)
  1. PEG-INTERFERON ALFA 2A (RO 25-8310) [Suspect]
     Indication: HEPATITIS C
     Route: 058
     Dates: start: 20081230, end: 20090725

REACTIONS (2)
  - LIBIDO DECREASED [None]
  - PLATELET COUNT DECREASED [None]
